FAERS Safety Report 9771800 (Version 1)
Quarter: 2013Q3

REPORT INFORMATION
  Report Type: Spontaneous
  Country: GB (occurrence: None)
  Receive Date: 20130919
  Receipt Date: 20130919
  Transmission Date: 20140515
  Serious: Yes (Hospitalization)
  Sender: FDA-Public Use
  Company Number: SYM-2013-00499

PATIENT
  Age: 65 Year
  Sex: Male

DRUGS (12)
  1. 5-FU (FLUOROURACIL) (FLUOROURACIL) [Suspect]
     Indication: COLORECTAL CANCER METASTATIC
     Dosage: EVERY CYCLE
     Route: 042
     Dates: start: 20121001, end: 20121001
  2. AFLIBERCEPT (AFLIBERCEPT) (SOLUTION FOR INFUSION) (AFLIBERCEPT) [Suspect]
     Indication: COLORECTAL CANCER METASTATIC
     Dosage: EVERY CYCLE
     Route: 042
     Dates: start: 20121001, end: 20121001
  3. IRINOTECAN (IRINOTECAN) (SOLUTION FOR INFUSION) (IRINOTECAN) [Suspect]
     Indication: COLORECTAL CANCER METASTATIC
     Dosage: EVERY CYCLE
     Route: 042
     Dates: start: 20121001, end: 20121001
  4. LEUCOVORIN (FOLINIC ACID) (SOLUTION FOR INFUSION) (FOLINIC ACID) [Suspect]
     Indication: COLORECTAL CANCER METASTATIC
     Dosage: EVERY CYCLE
     Route: 042
     Dates: start: 20121001, end: 20121001
  5. LACTULOSE (LACTULOSE) (LACTULOSE) [Concomitant]
  6. ANTIBIOTICS (ANTIBIOTICS) [Concomitant]
  7. STREPSILS (STREPSILS /00200801/) (AMYLMETACRESOL, DICHLOROBENZYL ALCOHOL) [Concomitant]
  8. DIFFLAM (BENZYDAMINE HYDROCHLORIDE) (BENZYDAMINE HYDROCHLORIDE) [Concomitant]
  9. MACROGOL (MACROGOL) (MACROGOL) [Concomitant]
  10. CALCIUM CHANNEL BLOCKERS (CALCIUM CHANNEL BLOCKERS) [Concomitant]
  11. LOPERAMIDE (LOPERAMIDE) (LOPERAMIDE) [Concomitant]
  12. VITAMIN B12 (CYANOCOBALAMIN) (CYANOCOBALAMIN) [Concomitant]

REACTIONS (3)
  - Upper respiratory tract infection [None]
  - Neutropenic infection [None]
  - Sepsis [None]
